FAERS Safety Report 7238595-5 (Version None)
Quarter: 2011Q1

REPORT INFORMATION
  Report Type: 
  Country: None (occurrence: None)
  Receive Date: 20110121
  Receipt Date: 20110114
  Transmission Date: 20110831
  Serious: Yes (Other)
  Sender: FDA-Public Use
  Company Number: US-GENENTECH-306988

PATIENT
  Sex: Male
  Weight: 60 kg

DRUGS (7)
  1. XOLAIR [Suspect]
     Indication: ASTHMA
     Dosage: 375 MG, Q2W
     Route: 058
     Dates: start: 20090110
  2. SINGULAIR [Concomitant]
     Indication: ASTHMA
     Dosage: 10 MG, QD
  3. CLARINEX [Concomitant]
     Indication: PRODUCT USED FOR UNKNOWN INDICATION
  4. ALBUTEROL [Concomitant]
     Indication: ASTHMA
     Dosage: 2 PUFF, PRN
  5. CALCIUM [Concomitant]
     Indication: OSTEOPENIA
     Dosage: 500 MG, QD
  6. IMMUNOTHERAPY (ALLERGEN UNKNOWN) [Concomitant]
     Indication: PRODUCT USED FOR UNKNOWN INDICATION
  7. ADVAIR [Concomitant]
     Indication: ASTHMA
     Dosage: UNK PUFF, BID

REACTIONS (2)
  - SWOLLEN TONGUE [None]
  - WHEEZING [None]
